FAERS Safety Report 12789410 (Version 2)
Quarter: 2016Q4

REPORT INFORMATION
  Report Type: Spontaneous
  Country: FR (occurrence: FR)
  Receive Date: 20160928
  Receipt Date: 20161006
  Transmission Date: 20170207
  Serious: Yes (Other)
  Sender: FDA-Public Use
  Company Number: FR-EISAI MEDICAL RESEARCH-EC-2016-020634

PATIENT
  Age: 52 Year
  Sex: Male

DRUGS (11)
  1. FYCOMPA [Interacting]
     Active Substance: PERAMPANEL
     Route: 048
     Dates: end: 201605
  2. FYCOMPA [Interacting]
     Active Substance: PERAMPANEL
     Dosage: UNKNOWN
     Route: 048
     Dates: start: 2016, end: 201606
  3. LAMOTRIGINE. [Interacting]
     Active Substance: LAMOTRIGINE
     Indication: LENNOX-GASTAUT SYNDROME
     Dosage: 200 MG IN THE MORNING, 100 MG IN THE EVENING
     Route: 048
  4. INOVELON [Concomitant]
     Active Substance: RUFINAMIDE
     Dosage: DOSE DECREASED
     Dates: start: 201511
  5. FYCOMPA [Interacting]
     Active Substance: PERAMPANEL
     Dosage: PROGRESSIVELY INCREASED
     Route: 048
  6. FYCOMPA [Suspect]
     Active Substance: PERAMPANEL
     Indication: LENNOX-GASTAUT SYNDROME
     Route: 048
     Dates: start: 201511
  7. KEPPRA [Concomitant]
     Active Substance: LEVETIRACETAM
     Indication: PRODUCT USED FOR UNKNOWN INDICATION
  8. FYCOMPA [Interacting]
     Active Substance: PERAMPANEL
     Dosage: PROGRESSIVELY REDUCED
     Route: 048
     Dates: start: 201605, end: 2016
  9. INOVELON [Concomitant]
     Active Substance: RUFINAMIDE
     Indication: LENNOX-GASTAUT SYNDROME
     Dosage: UNKNOWN
     Dates: end: 201511
  10. ZARONTIN [Concomitant]
     Active Substance: ETHOSUXIMIDE
     Indication: PRODUCT USED FOR UNKNOWN INDICATION
     Dosage: UNKNOWN
  11. DEPAKINE [Interacting]
     Active Substance: VALPROATE SODIUM
     Indication: LENNOX-GASTAUT SYNDROME
     Dosage: 500 MG IN THE MORNING, 750 MG IN THE EVENING
     Route: 048

REACTIONS (3)
  - Epilepsy [Recovered/Resolved]
  - Drug ineffective [Recovered/Resolved]
  - Drug interaction [Recovered/Resolved]

NARRATIVE: CASE EVENT DATE: 2016
